FAERS Safety Report 5977650-4 (Version None)
Quarter: 2008Q4

REPORT INFORMATION
  Report Type: 
  Country: None (occurrence: None)
  Receive Date: 20081201
  Receipt Date: 20081201
  Transmission Date: 20090506
  Serious: Yes (Hospitalization)
  Sender: FDA-Public Use
  Company Number: None

PATIENT
  Sex: Male

DRUGS (2)
  1. OXALIPLATIN [Suspect]
     Indication: OESOPHAGEAL CARCINOMA
     Dosage: 130 MG WEEKLY IV
     Route: 042
     Dates: start: 20080917
  2. CAPECITABINE (200MG/M2) [Suspect]
     Indication: OESOPHAGEAL CARCINOMA
     Dosage: 3600 MG/DAY DAILY X 14 DAYS PO
     Route: 048
     Dates: start: 20080922

REACTIONS (28)
  - ABDOMINAL DISCOMFORT [None]
  - ABDOMINAL DISTENSION [None]
  - ABDOMINAL PAIN [None]
  - ASPIRATION [None]
  - BLOOD GLUCOSE DECREASED [None]
  - BLOOD PRESSURE SYSTOLIC INCREASED [None]
  - CATHETER RELATED COMPLICATION [None]
  - CATHETER THROMBOSIS [None]
  - CLOSTRIDIUM DIFFICILE COLITIS [None]
  - DELIRIUM [None]
  - DIARRHOEA [None]
  - DYSPNOEA [None]
  - ENTEROCOLITIS INFECTIOUS [None]
  - FLUID OVERLOAD [None]
  - FUNGAL INFECTION [None]
  - GASTROINTESTINAL HYPOMOTILITY [None]
  - HAEMATEMESIS [None]
  - HYPERNATRAEMIA [None]
  - LUNG ABSCESS [None]
  - NEUTROPENIA [None]
  - OCCULT BLOOD POSITIVE [None]
  - PNEUMONIA [None]
  - PULMONARY CAVITATION [None]
  - PULMONARY OEDEMA [None]
  - RESPIRATORY ALKALOSIS [None]
  - SEPTIC SHOCK [None]
  - SINUS TACHYCARDIA [None]
  - THROMBOCYTOPENIA [None]
